FAERS Safety Report 18660496 (Version 1)
Quarter: 2020Q4

REPORT INFORMATION
  Report Type: Spontaneous
  Country: US (occurrence: US)
  Receive Date: 20201224
  Receipt Date: 20201224
  Transmission Date: 20210114
  Serious: Yes (Other)
  Sender: FDA-Public Use
  Company Number: US-009507513-2012USA010338

PATIENT
  Sex: Female

DRUGS (3)
  1. LEVAQUIN [Suspect]
     Active Substance: LEVOFLOXACIN
  2. CUBICIN [Suspect]
     Active Substance: DAPTOMYCIN
     Route: 042
  3. ZERBAXA [Suspect]
     Active Substance: CEFTOLOZANE SULFATE\TAZOBACTAM SODIUM
     Dosage: UNK
     Route: 042
     Dates: end: 20201220

REACTIONS (4)
  - Seizure [Not Recovered/Not Resolved]
  - Product availability issue [Unknown]
  - Terminal state [Not Recovered/Not Resolved]
  - Endotracheal intubation [Not Recovered/Not Resolved]
